FAERS Safety Report 8298546-1 (Version None)
Quarter: 2012Q2

REPORT INFORMATION
  Report Type: 
  Country: None (occurrence: None)
  Receive Date: 20120419
  Receipt Date: 20120405
  Transmission Date: 20120825
  Serious: Yes (Disabling)
  Sender: FDA-Public Use
  Company Number: GB-MYLANLABS-2012S1007510

PATIENT
  Age: 51 Year
  Sex: Female
  Weight: 69.7 kg

DRUGS (2)
  1. GABAPENTIN [Suspect]
     Indication: PRODUCT USED FOR UNKNOWN INDICATION
     Dates: start: 20120301
  2. ESTRADIOL [Concomitant]
     Indication: PRODUCT USED FOR UNKNOWN INDICATION
     Dates: start: 20120322

REACTIONS (4)
  - TREMOR [None]
  - WITHDRAWAL SYNDROME [None]
  - DIZZINESS [None]
  - MALAISE [None]
